FAERS Safety Report 4642719-3 (Version None)
Quarter: 2005Q2

REPORT INFORMATION
  Report Type: 
  Country: None (occurrence: None)
  Receive Date: 20050420
  Receipt Date: 20050412
  Transmission Date: 20051028
  Serious: Yes (Hospitalization)
  Sender: FDA-Public Use
  Company Number: 2005059252

PATIENT
  Age: 64 Year
  Sex: Male

DRUGS (3)
  1. NORVASC [Suspect]
     Indication: CEREBRAL INFARCTION
     Dosage: 5 MG ORAL
     Route: 048
     Dates: start: 20050201, end: 20050405
  2. LOSARTAN POTASSIUM [Suspect]
     Indication: CEREBRAL INFARCTION
     Dosage: ORAL
     Route: 048
     Dates: start: 20050201, end: 20050405
  3. CILOSTAZOL [Suspect]
     Indication: CEREBRAL INFARCTION
     Dosage: ORAL
     Route: 048
     Dates: start: 20050201, end: 20050405

REACTIONS (3)
  - AGRANULOCYTOSIS [None]
  - PAROTITIS [None]
  - PHARYNGITIS [None]
